FAERS Safety Report 21192679 (Version 1)
Quarter: 2022Q3

REPORT INFORMATION
  Report Type: Spontaneous
  Country: CN (occurrence: CN)
  Receive Date: 20220810
  Receipt Date: 20220810
  Transmission Date: 20221027
  Serious: Yes (Life-Threatening, Hospitalization, Other)
  Sender: FDA-Public Use
  Company Number: CN-SUN PHARMACEUTICAL INDUSTRIES LTD-2022R1-348083

PATIENT
  Age: 29 Year
  Sex: Male

DRUGS (2)
  1. METHIMAZOLE [Suspect]
     Active Substance: METHIMAZOLE
     Indication: Basedow^s disease
     Route: 065
  2. METHIMAZOLE [Suspect]
     Active Substance: METHIMAZOLE
     Indication: Hyperthyroidism

REACTIONS (4)
  - Thyrotoxic crisis [Recovering/Resolving]
  - Coma [Recovering/Resolving]
  - Cerebral venous sinus thrombosis [Unknown]
  - Treatment noncompliance [Unknown]
